FAERS Safety Report 16058607 (Version 4)
Quarter: 2019Q2

REPORT INFORMATION
  Report Type: Report from Study
  Country: CA (occurrence: CA)
  Receive Date: 20190311
  Receipt Date: 20190429
  Transmission Date: 20190711
  Serious: Yes (Other)
  Sender: FDA-Public Use
  Company Number: CA-JNJFOC-20190304533

PATIENT
  Age: 43 Year
  Sex: Male

DRUGS (1)
  1. STELARA [Suspect]
     Active Substance: USTEKINUMAB
     Indication: PSORIASIS
     Dosage: STRENGTH = 90 MG
     Route: 058
     Dates: start: 20170623

REACTIONS (6)
  - Procedural pain [Unknown]
  - Constipation [Unknown]
  - Product use issue [Unknown]
  - Cholelithiasis [Unknown]
  - Postoperative wound infection [Unknown]
  - Off label use [Unknown]

NARRATIVE: CASE EVENT DATE: 201903
